FAERS Safety Report 8920355 (Version 5)
Quarter: 2013Q1

REPORT INFORMATION
  Report Type: Report from Study
  Country: BE (occurrence: BE)
  Receive Date: 20121122
  Receipt Date: 20130329
  Transmission Date: 20140127
  Serious: Yes (Life-Threatening, Hospitalization)
  Sender: FDA-Public Use
  Company Number: BE-009507513-1211BEL007856

PATIENT
  Age: 55 Year
  Sex: Male

DRUGS (5)
  1. VICTRELIS [Suspect]
     Indication: CHRONIC HEPATITIS C
     Dosage: 2400 MG, DAILY
     Route: 048
     Dates: start: 20121031
  2. REBETOL [Suspect]
     Dosage: DAILY DOSE 200 MG
     Route: 048
     Dates: start: 20121002
  3. PEGINTERFERON ALFA-2A [Suspect]
     Indication: CHRONIC HEPATITIS C
     Dosage: 135 MICROGRAM, ONCE A WEEK
     Route: 058
     Dates: start: 20121002
  4. SPIRONOLACTONE [Concomitant]
     Indication: HYPERTENSION
     Dosage: 25 MG, ONCE A DAY
     Route: 048
     Dates: start: 20121116
  5. SEVIKAR [Concomitant]
     Indication: HYPERTENSION
     Dosage: 40/10,  ONCE A DAY
     Route: 048
     Dates: start: 20121116

REACTIONS (2)
  - Renal failure acute [Recovered/Resolved]
  - Hyperkalaemia [Recovered/Resolved]
